FAERS Safety Report 21386535 (Version 1)
Quarter: 2022Q3

REPORT INFORMATION
  Report Type: Spontaneous
  Country: AU (occurrence: AU)
  Receive Date: 20220928
  Receipt Date: 20220928
  Transmission Date: 20221027
  Serious: Yes (Other)
  Sender: FDA-Public Use
  Company Number: AU-Merck Healthcare KGaA-9351960

PATIENT
  Age: 78 Year
  Sex: Female

DRUGS (1)
  1. ERBITUX [Suspect]
     Active Substance: CETUXIMAB
     Indication: Product used for unknown indication
     Dosage: UNK, UNKNOWN
     Route: 065

REACTIONS (7)
  - Consciousness fluctuating [Unknown]
  - Blood pressure abnormal [Unknown]
  - Dizziness [Unknown]
  - Dyspnoea [Unknown]
  - Feeling hot [Unknown]
  - Nausea [Unknown]
  - Pruritus [Unknown]
